FAERS Safety Report 6774080-2 (Version None)
Quarter: 2010Q2

REPORT INFORMATION
  Report Type: 
  Country: None (occurrence: None)
  Receive Date: 20100616
  Receipt Date: 20100616
  Transmission Date: 20101027
  Serious: Yes (Hospitalization, Disabling)
  Sender: FDA-Public Use
  Company Number: None

PATIENT
  Age: 50 Year
  Sex: Male
  Weight: 73.9 kg

DRUGS (9)
  1. LOVENOX [Suspect]
  2. COUMADIN [Concomitant]
  3. MOM [Concomitant]
  4. MORPHINE [Concomitant]
  5. DILAUDID [Concomitant]
  6. SUBLIMAZE PRESERVATIVE FREE [Concomitant]
  7. LORTAB [Concomitant]
  8. DULCOLAX [Concomitant]
  9. HEPARIN SODIUM [Concomitant]

REACTIONS (5)
  - CHOLECYSTITIS ACUTE [None]
  - HAEMATOCRIT DECREASED [None]
  - HAEMATOMA [None]
  - HAEMOGLOBIN DECREASED [None]
  - INTRA-ABDOMINAL HAEMATOMA [None]
